FAERS Safety Report 9717728 (Version 1)
Quarter: 2013Q4

REPORT INFORMATION
  Report Type: Spontaneous
  Country: US (occurrence: US)
  Receive Date: 20131127
  Receipt Date: 20131127
  Transmission Date: 20140711
  Serious: No
  Sender: FDA-Public Use
  Company Number: US-009507513-1311USA011530

PATIENT
  Age: 27 Year
  Sex: Female

DRUGS (8)
  1. CLARITIN-D-24 [Suspect]
     Indication: HYPERSENSITIVITY
     Dosage: UNK, UNKNOWN
     Route: 048
     Dates: start: 201311
  2. CLARITIN-D-24 [Suspect]
     Indication: OCULAR HYPERAEMIA
  3. CLARITIN-D-24 [Suspect]
     Indication: EYE SWELLING
  4. CLARITIN-D-24 [Suspect]
     Indication: THROAT IRRITATION
  5. CLARITIN-D-24 [Suspect]
     Indication: PRODUCTIVE COUGH
  6. CLARITIN-D-24 [Suspect]
     Indication: NASAL CONGESTION
  7. CLARITIN-D-24 [Suspect]
     Indication: NASAL DISCOMFORT
  8. CLARITIN-D-24 [Suspect]
     Indication: RHINORRHOEA

REACTIONS (1)
  - Drug effect decreased [Unknown]
